FAERS Safety Report 17815027 (Version 1)
Quarter: 2020Q2

REPORT INFORMATION
  Report Type: Spontaneous
  Country: US (occurrence: US)
  Receive Date: 20200522
  Receipt Date: 20200522
  Transmission Date: 20200714
  Serious: Yes (Hospitalization, Other)
  Sender: FDA-Public Use
  Company Number: NVSC2020US137222

PATIENT
  Age: 15 Year
  Sex: Female

DRUGS (2)
  1. METHOTREXATE. [Suspect]
     Active Substance: METHOTREXATE
     Indication: CROHN^S DISEASE
     Dosage: UNK
     Route: 065
  2. MERCAPTOPURINE. [Suspect]
     Active Substance: MERCAPTOPURINE
     Indication: CROHN^S DISEASE
     Dosage: UNK
     Route: 065

REACTIONS (14)
  - Pyrexia [Unknown]
  - Abdominal distension [Unknown]
  - Haemophagocytic lymphohistiocytosis [Unknown]
  - Renal failure [Unknown]
  - Metabolic acidosis [Unknown]
  - Cytopenia [Unknown]
  - Hepatosplenic T-cell lymphoma [Unknown]
  - Hypoxia [Unknown]
  - Fatigue [Unknown]
  - Hypoglycaemia [Unknown]
  - Hepatic failure [Unknown]
  - Hepatosplenomegaly [Unknown]
  - Hyperammonaemia [Unknown]
  - Product use in unapproved indication [Unknown]
